FAERS Safety Report 10498731 (Version 1)
Quarter: 2014Q4

REPORT INFORMATION
  Report Type: Spontaneous
  Country: FR (occurrence: FR)
  Receive Date: 20141006
  Receipt Date: 20141006
  Transmission Date: 20150528
  Serious: Yes (Disabling)
  Sender: FDA-Public Use
  Company Number: FR-PFIZER INC-2014268596

PATIENT
  Age: 65 Year
  Sex: Male

DRUGS (14)
  1. EUPRESSYL [Concomitant]
     Active Substance: URAPIDIL
     Dosage: 30 UNK, UNK
     Dates: start: 201209
  2. SOLUPRED [Concomitant]
     Active Substance: PREDNISOLONE
     Dosage: UNK
     Dates: start: 2004
  3. ACEBUTOLOL [Concomitant]
     Active Substance: ACEBUTOLOL
     Dosage: UNK
     Dates: start: 200903
  4. MIRCERA [Concomitant]
     Active Substance: PEGZEREPOETIN ALFA
     Dosage: UNK
  5. UVEDOSE [Concomitant]
     Active Substance: CHOLECALCIFEROL
     Dosage: UNK
  6. EUPRESSYL [Concomitant]
     Active Substance: URAPIDIL
     Dosage: UNK
     Dates: start: 201005, end: 201110
  7. KARDEGIC [Concomitant]
     Active Substance: ASPIRIN LYSINE
     Dosage: 160 UNK, UNK
     Dates: start: 200903
  8. APROVEL [Concomitant]
     Active Substance: IRBESARTAN
     Dosage: 150 UNK, UNK
     Dates: start: 2006
  9. ZANIDIP [Concomitant]
     Active Substance: LERCANIDIPINE HYDROCHLORIDE
     Dosage: UNK
  10. CORDARONE [Suspect]
     Active Substance: AMIODARONE HYDROCHLORIDE
     Indication: ATRIAL FIBRILLATION
     Dosage: 200 MG, DAILY 5 DAYS/7 DAYS
     Route: 048
     Dates: start: 201005
  11. CORDARONE [Suspect]
     Active Substance: AMIODARONE HYDROCHLORIDE
     Dosage: 100 MG (1/2 TABLET), 3 DAYS/7DAYS
     Route: 048
  12. RAPAMUNE [Concomitant]
     Active Substance: SIROLIMUS
     Dosage: UNK
     Dates: start: 201107
  13. TAHOR [Suspect]
     Active Substance: ATORVASTATIN CALCIUM
     Dosage: 40 MG, DAILY
     Route: 048
     Dates: start: 200903
  14. IMUREL [Concomitant]
     Active Substance: AZATHIOPRINE SODIUM
     Dosage: UNK
     Dates: start: 201010

REACTIONS (2)
  - Polyneuropathy [Not Recovered/Not Resolved]
  - Paraesthesia [Not Recovered/Not Resolved]

NARRATIVE: CASE EVENT DATE: 2013
